FAERS Safety Report 7477051-6 (Version None)
Quarter: 2011Q2

REPORT INFORMATION
  Report Type: 
  Country: None (occurrence: None)
  Receive Date: 20110512
  Receipt Date: 20110504
  Transmission Date: 20111010
  Serious: Yes (Hospitalization, Disabling, Other)
  Sender: FDA-Public Use
  Company Number: US-MERCK-1004USA00573

PATIENT
  Age: 66 Year
  Sex: Female

DRUGS (3)
  1. FOSAMAX [Suspect]
     Indication: OSTEOPOROSIS
     Route: 048
     Dates: start: 20021201, end: 20071201
  2. FOSAMAX [Suspect]
     Indication: BONE LOSS
     Route: 048
     Dates: start: 20021201, end: 20071201
  3. BONIVA [Concomitant]
     Indication: BONE LOSS
     Route: 048
     Dates: start: 20071201, end: 20090801

REACTIONS (28)
  - OSTEONECROSIS OF JAW [None]
  - BACK PAIN [None]
  - NEUROLOGICAL DECOMPENSATION [None]
  - TOOTHACHE [None]
  - DENTAL NECROSIS [None]
  - CHRONIC OBSTRUCTIVE PULMONARY DISEASE [None]
  - LUNG DISORDER [None]
  - LOOSE TOOTH [None]
  - FALL [None]
  - CONSTIPATION [None]
  - TOOTH INFECTION [None]
  - LIMB INJURY [None]
  - PAIN IN EXTREMITY [None]
  - ORAL TORUS [None]
  - DENTAL CARIES [None]
  - TOOTH LOSS [None]
  - HYPERTENSION [None]
  - ANAEMIA [None]
  - JAW DISORDER [None]
  - MYELITIS TRANSVERSE [None]
  - OSTEOMYELITIS [None]
  - URINARY TRACT DISORDER [None]
  - PUBIS FRACTURE [None]
  - ARTHROPATHY [None]
  - GROIN PAIN [None]
  - LUMBAR SPINAL STENOSIS [None]
  - WEIGHT BEARING DIFFICULTY [None]
  - INTERVERTEBRAL DISC PROTRUSION [None]
